FAERS Safety Report 5426194-7 (Version None)
Quarter: 2007Q3

REPORT INFORMATION
  Report Type: 
  Country: None (occurrence: None)
  Receive Date: 20070827
  Receipt Date: 20070823
  Transmission Date: 20080115
  Serious: Yes (Death, Hospitalization)
  Sender: FDA-Public Use
  Company Number: A0676124A

PATIENT
  Age: 75 Year
  Sex: Male
  Weight: 67 kg

DRUGS (2)
  1. AVANDAMET [Suspect]
     Dates: start: 20060801, end: 20070522
  2. AMARYL [Concomitant]
     Dosage: 2MG PER DAY
     Dates: start: 19970101, end: 20070528

REACTIONS (3)
  - ARRHYTHMIA [None]
  - FATIGUE [None]
  - OEDEMA [None]
